FAERS Safety Report 8739387 (Version 2)
Quarter: 2012Q4

REPORT INFORMATION
  Report Type: 
  Country: US (occurrence: US)
  Receive Date: 20120823
  Receipt Date: 20121213
  Transmission Date: 20130627
  Serious: Yes (Hospitalization)
  Sender: FDA-Public Use
  Company Number: US-ELI_LILLY_AND_COMPANY-US201208004422

PATIENT
  Sex: Female

DRUGS (2)
  1. FORTEO [Suspect]
     Indication: OSTEOPOROSIS
     Dosage: 20 ug, qd
     Dates: start: 201203
  2. FORTEO [Suspect]
     Dosage: 20 ug, qd

REACTIONS (6)
  - Cholecystitis infective [Unknown]
  - Vomiting [Unknown]
  - Rash [Unknown]
  - Swelling [Unknown]
  - Urticaria [Unknown]
  - Contusion [Unknown]
